FAERS Safety Report 16000639 (Version 3)
Quarter: 2019Q1

REPORT INFORMATION
  Report Type: Spontaneous
  Country: GR (occurrence: GR)
  Receive Date: 20190225
  Receipt Date: 20190306
  Transmission Date: 20190418
  Serious: Yes (Other)
  Sender: FDA-Public Use
  Company Number: GR-PFIZER INC-2019076869

PATIENT
  Age: 48 Year
  Sex: Female

DRUGS (3)
  1. TAVOR (LORAZEPAM) [Suspect]
     Active Substance: LORAZEPAM
     Indication: BIPOLAR DISORDER
     Dosage: UNK (HALF A 2.5 MG TAB IN THE MORNING, HALF AT NOON AND 1 TAB AT NIGHT)
     Dates: start: 2018
  2. TAVOR (LORAZEPAM) [Suspect]
     Active Substance: LORAZEPAM
     Dosage: 1 MG, DAILY
  3. LASIX [Concomitant]
     Active Substance: FUROSEMIDE
     Indication: URINARY RETENTION
     Dosage: UNK

REACTIONS (12)
  - Drug ineffective for unapproved indication [Unknown]
  - Weight increased [Unknown]
  - Dyspnoea [Unknown]
  - Feeling abnormal [Unknown]
  - Confusional state [Unknown]
  - Tachycardia [Unknown]
  - Angioedema [Unknown]
  - Hypoaesthesia [Unknown]
  - Apnoea [Unknown]
  - Stress [Unknown]
  - Fatigue [Unknown]
  - Anger [Unknown]

NARRATIVE: CASE EVENT DATE: 2018
